FAERS Safety Report 5685385-0 (Version None)
Quarter: 2008Q1

REPORT INFORMATION
  Report Type: 
  Country: None (occurrence: None)
  Receive Date: 20080328
  Receipt Date: 20080318
  Transmission Date: 20080703
  Serious: Yes (Disabling)
  Sender: FDA-Public Use
  Company Number: GB-PFIZER INC-2008025500

PATIENT
  Age: 87 Year
  Sex: Male
  Weight: 81.5 kg

DRUGS (11)
  1. PREGABALIN [Suspect]
  2. ADCAL-D3 [Concomitant]
  3. ALENDRONATE SODIUM [Concomitant]
  4. AMIODARONE HCL [Concomitant]
  5. ACETYLSALICYLIC ACID SRT [Concomitant]
  6. ATORVASTATIN CALCIUM [Concomitant]
  7. BUMETANIDE [Concomitant]
  8. ISOSORBIDE MONONITRATE [Concomitant]
  9. OMEPRAZOLE [Concomitant]
  10. SALBUTAMOL [Concomitant]
  11. TIOTROPIUM BROMIDE [Concomitant]

REACTIONS (2)
  - CHRONIC OBSTRUCTIVE PULMONARY DISEASE [None]
  - MUSCULAR WEAKNESS [None]
